FAERS Safety Report 7377962-6 (Version None)
Quarter: 2011Q1

REPORT INFORMATION
  Report Type: 
  Country: None (occurrence: None)
  Receive Date: 20110317
  Receipt Date: 20110307
  Transmission Date: 20110831
  Serious: Yes (Other)
  Sender: FDA-Public Use
  Company Number: 2011030048

PATIENT
  Age: 40 Year
  Sex: Female

DRUGS (4)
  1. ONSOLIS [Suspect]
     Indication: NEUROENDOCRINE TUMOUR
     Dosage: (200 MCG, 200-400 MCG UP TO 6 IN ONE DAY), BU
     Route: 002
     Dates: start: 20100216
  2. ONSOLIS [Suspect]
     Indication: PAIN
     Dosage: (200 MCG, 200-400 MCG UP TO 6 IN ONE DAY), BU
     Route: 002
     Dates: start: 20100216
  3. FENTANYL [Concomitant]
  4. TOPAMAX [Concomitant]

REACTIONS (3)
  - IMPAIRED GASTRIC EMPTYING [None]
  - CONDITION AGGRAVATED [None]
  - IRRITABLE BOWEL SYNDROME [None]
